FAERS Safety Report 11752046 (Version 1)
Quarter: 2015Q4

REPORT INFORMATION
  Report Type: Report from Study
  Country: CH (occurrence: CH)
  Receive Date: 20151118
  Receipt Date: 20151118
  Transmission Date: 20160304
  Serious: Yes (Other)
  Sender: FDA-Public Use
  Company Number: CH-ABBVIE-15P-151-1503281-00

PATIENT
  Sex: Male

DRUGS (2)
  1. DUODOPA [Suspect]
     Active Substance: CARBIDOPA\LEVODOPA
     Dosage: MORNING DOSE: 3.5MLCONTINUOUS DOSE. 2ML/HEXTRA DOSE: 1ML
     Route: 050
     Dates: start: 20151025
  2. DUODOPA [Suspect]
     Active Substance: CARBIDOPA\LEVODOPA
     Indication: PARKINSON^S DISEASE
     Dosage: 16H THERAPY
     Route: 050
     Dates: start: 20151005, end: 20151009

REACTIONS (2)
  - Hiatus hernia [Recovered/Resolved]
  - Unintentional medical device removal [Unknown]
